FAERS Safety Report 12211263 (Version 1)
Quarter: 2016Q1

REPORT INFORMATION
  Report Type: Spontaneous
  Country: FR (occurrence: FR)
  Receive Date: 20160325
  Receipt Date: 20160325
  Transmission Date: 20160526
  Serious: Yes (Hospitalization)
  Sender: FDA-Public Use
  Company Number: FR-SA-2016SA059129

PATIENT
  Age: 79 Year
  Sex: Female

DRUGS (10)
  1. LERCAN [Suspect]
     Active Substance: LERCANIDIPINE
     Dosage: STRENGTH: 20 MG
     Route: 048
     Dates: end: 20151025
  2. LASILIX [Suspect]
     Active Substance: FUROSEMIDE
     Indication: HYPERTENSION
     Route: 048
     Dates: end: 20151025
  3. VASTAREL [Suspect]
     Active Substance: TRIMETAZIDINE DIHYDROCHLORIDE
     Route: 048
     Dates: end: 20151025
  4. CO-RENITEC [Suspect]
     Active Substance: ENALAPRIL\HYDROCHLOROTHIAZIDE
     Route: 048
     Dates: end: 20151025
  5. DOLIPRANE [Suspect]
     Active Substance: ACETAMINOPHEN
     Route: 048
     Dates: end: 20151025
  6. ZOLPIDEM [Suspect]
     Active Substance: ZOLPIDEM\ZOLPIDEM TARTRATE
     Route: 048
     Dates: end: 20151025
  7. DIFFU K [Suspect]
     Active Substance: POTASSIUM CHLORIDE
     Route: 048
     Dates: end: 20151025
  8. VOLTARENE [Suspect]
     Active Substance: DICLOFENAC SODIUM
     Indication: SCIATICA
     Route: 048
     Dates: end: 20151025
  9. MEDIATENSYL [Suspect]
     Active Substance: URAPIDIL
     Route: 048
     Dates: end: 20151025
  10. FENOFIBRATE. [Suspect]
     Active Substance: FENOFIBRATE
     Route: 048
     Dates: end: 20151025

REACTIONS (5)
  - Hypotension [Recovered/Resolved]
  - Rhabdomyolysis [Recovering/Resolving]
  - Somnolence [Recovered/Resolved]
  - Fall [Recovering/Resolving]
  - Acute kidney injury [Recovering/Resolving]

NARRATIVE: CASE EVENT DATE: 20151025
